FAERS Safety Report 10477204 (Version 2)
Quarter: 2014Q4

REPORT INFORMATION
  Report Type: Spontaneous
  Country: DE (occurrence: DE)
  Receive Date: 20140926
  Receipt Date: 20141223
  Transmission Date: 20150528
  Serious: Yes (Hospitalization, Other)
  Sender: FDA-Public Use
  Company Number: DE-SHIRE-DE201406087

PATIENT
  Age: 11 Year
  Sex: Male
  Weight: 35.4 kg

DRUGS (1)
  1. ELVANSE [Suspect]
     Active Substance: LISDEXAMFETAMINE DIMESYLATE
     Indication: ATTENTION DEFICIT/HYPERACTIVITY DISORDER
     Dosage: 30 MG, 1X/DAY:QD, MORNINGS
     Route: 048
     Dates: start: 20140512, end: 20140901

REACTIONS (7)
  - Dyshidrotic eczema [Recovering/Resolving]
  - Mechanical urticaria [Recovering/Resolving]
  - Superinfection bacterial [Recovering/Resolving]
  - Lymphangitis [Recovering/Resolving]
  - Rash [Recovering/Resolving]
  - Vomiting [Unknown]
  - Headache [Unknown]

NARRATIVE: CASE EVENT DATE: 20140512
